FAERS Safety Report 12689025 (Version 3)
Quarter: 2017Q3

REPORT INFORMATION
  Report Type: Spontaneous
  Country: JP (occurrence: JP)
  Receive Date: 20160825
  Receipt Date: 20170818
  Transmission Date: 20171127
  Serious: Yes (Other)
  Sender: FDA-Public Use
  Company Number: JP-ROCHE-1819818

PATIENT
  Age: 78 Year
  Sex: Male

DRUGS (2)
  1. LUCENTIS [Suspect]
     Active Substance: RANIBIZUMAB
     Indication: AGE-RELATED MACULAR DEGENERATION
     Route: 050
  2. AFLIBERCEPT [Concomitant]
     Active Substance: AFLIBERCEPT
     Indication: AGE-RELATED MACULAR DEGENERATION
     Dosage: UNK
     Route: 031

REACTIONS (1)
  - Disease progression [Unknown]
